FAERS Safety Report 7386889-5 (Version None)
Quarter: 2011Q1

REPORT INFORMATION
  Report Type: 
  Country: None (occurrence: None)
  Receive Date: 20110331
  Receipt Date: 20110325
  Transmission Date: 20110831
  Serious: No
  Sender: FDA-Public Use
  Company Number: US-PFIZER INC-2011067274

PATIENT
  Sex: Female
  Weight: 61 kg

DRUGS (2)
  1. TOPAMAX [Concomitant]
  2. ESTRING [Suspect]
     Indication: HORMONE REPLACEMENT THERAPY
     Dosage: UNK
     Route: 067
     Dates: start: 20110221

REACTIONS (1)
  - HEADACHE [None]
